FAERS Safety Report 9486205 (Version 1)
Quarter: 2013Q3

REPORT INFORMATION
  Report Type: Spontaneous
  Country: US (occurrence: US)
  Receive Date: 20130829
  Receipt Date: 20130829
  Transmission Date: 20140515
  Serious: No
  Sender: FDA-Public Use
  Company Number: US-PFIZER INC-2013244224

PATIENT
  Age: 78 Year
  Sex: Female
  Weight: 74.83 kg

DRUGS (2)
  1. LEVOXYL [Suspect]
     Indication: HYPOTHYROIDISM
     Dosage: 88 UG, 1X/DAY
     Dates: end: 20130610
  2. HYDROCHLOROTHIAZIDE/IRBESARTAN HYDROCHLORIDE [Concomitant]
     Indication: HYPERTENSION
     Dosage: 1 DF, / HYDROCHLOROTHIAZIDE 150/12.5 MG, 1X/DAY

REACTIONS (2)
  - Chest discomfort [Unknown]
  - Dyspnoea [Unknown]
